FAERS Safety Report 8597741-1 (Version None)
Quarter: 2012Q3

REPORT INFORMATION
  Report Type: 
  Country: None (occurrence: None)
  Receive Date: 20120816
  Receipt Date: 20120810
  Transmission Date: 20120928
  Serious: Yes (Hospitalization, Other)
  Sender: FDA-Public Use
  Company Number: PHEH2012US015778

PATIENT
  Sex: Female

DRUGS (5)
  1. METOPROLOL TARTRATE [Suspect]
     Indication: HYPERTENSION
  2. LOTREL [Concomitant]
  3. XANAX [Concomitant]
  4. LASIX [Concomitant]
  5. EXFORGE [Concomitant]

REACTIONS (2)
  - BLOOD PRESSURE DECREASED [None]
  - TRANSIENT ISCHAEMIC ATTACK [None]
